FAERS Safety Report 5679693-7 (Version None)
Quarter: 2008Q1

REPORT INFORMATION
  Report Type: 
  Country: None (occurrence: None)
  Receive Date: 20080321
  Receipt Date: 20080311
  Transmission Date: 20080703
  Serious: Yes (Other)
  Sender: FDA-Public Use
  Company Number: US022973

PATIENT
  Age: 63 Year
  Sex: Female

DRUGS (1)
  1. ALERTEC [Suspect]
     Indication: NARCOLEPSY
     Dosage: ORAL
     Route: 048
     Dates: start: 20000101, end: 20000101

REACTIONS (1)
  - HEPATIC FAILURE [None]
